FAERS Safety Report 23052301 (Version 1)
Quarter: 2023Q4

REPORT INFORMATION
  Report Type: Report from Study
  Country: US (occurrence: US)
  Receive Date: 20231010
  Receipt Date: 20231010
  Transmission Date: 20240110
  Serious: Yes (Hospitalization, Other)
  Sender: FDA-Public Use
  Company Number: US-ABBVIE-5443058

PATIENT
  Sex: Male

DRUGS (1)
  1. CREON [Suspect]
     Active Substance: PANCRELIPASE AMYLASE\PANCRELIPASE LIPASE\PANCRELIPASE PROTEASE
     Indication: Product used for unknown indication
     Route: 048
     Dates: start: 20141008

REACTIONS (7)
  - Multiple organ dysfunction syndrome [Recovering/Resolving]
  - Gastrointestinal injury [Unknown]
  - Pseudocyst [Unknown]
  - Renal impairment [Unknown]
  - Traumatic lung injury [Unknown]
  - Type 2 diabetes mellitus [Unknown]
  - Pancreatitis [Unknown]

NARRATIVE: CASE EVENT DATE: 20140101
